FAERS Safety Report 18025518 (Version 3)
Quarter: 2020Q3

REPORT INFORMATION
  Report Type: Spontaneous
  Country: US (occurrence: US)
  Receive Date: 20200715
  Receipt Date: 20200901
  Transmission Date: 20201103
  Serious: No
  Sender: FDA-Public Use
  Company Number: US-SA-2020SA180098

PATIENT

DRUGS (1)
  1. ALLEGRA D?12 HOUR [Suspect]
     Active Substance: FEXOFENADINE HYDROCHLORIDE\PSEUDOEPHEDRINE HYDROCHLORIDE
     Indication: HYPERSENSITIVITY
     Dosage: 60 MG, BID
     Route: 065

REACTIONS (5)
  - Hypersensitivity [Unknown]
  - Product odour abnormal [Unknown]
  - Suspected product quality issue [Unknown]
  - Drug ineffective [Unknown]
  - Product taste abnormal [Unknown]
